FAERS Safety Report 9715523 (Version 1)
Quarter: 2013Q4

REPORT INFORMATION
  Report Type: Spontaneous
  Country: US (occurrence: US)
  Receive Date: 20131127
  Receipt Date: 20131127
  Transmission Date: 20140711
  Serious: No
  Sender: FDA-Public Use
  Company Number: US-BIOGENIDEC-2013BI111755

PATIENT
  Age: 59 Year
  Sex: Female

DRUGS (1)
  1. AVONEX [Suspect]
     Indication: MULTIPLE SCLEROSIS
     Route: 030
     Dates: start: 20130906

REACTIONS (10)
  - Thinking abnormal [Recovered/Resolved]
  - Anger [Recovered/Resolved]
  - Walking aid user [Not Recovered/Not Resolved]
  - Contusion [Recovered/Resolved]
  - Weight decreased [Unknown]
  - Stress [Unknown]
  - Balance disorder [Unknown]
  - Tremor [Unknown]
  - Vocal cord disorder [Unknown]
  - Emotional disorder [Unknown]
